FAERS Safety Report 4917250-8 (Version None)
Quarter: 2006Q1

REPORT INFORMATION
  Report Type: 
  Country: None (occurrence: None)
  Receive Date: 20060221
  Receipt Date: 20051017
  Transmission Date: 20060701
  Serious: Yes (Hospitalization, Disabling)
  Sender: FDA-Public Use
  Company Number: US-MERCK-0510USA07679

PATIENT
  Age: 45 Year
  Sex: Female
  Weight: 86 kg

DRUGS (9)
  1. VIOXX [Suspect]
     Indication: ARTHRITIS
     Route: 048
     Dates: start: 20000420
  2. VIOXX [Suspect]
     Route: 048
     Dates: end: 20010911
  3. CLARITIN [Concomitant]
     Route: 065
  4. TALACEN [Concomitant]
     Route: 065
     Dates: start: 20000201, end: 20000701
  5. PHENTERMINE [Concomitant]
     Route: 065
  6. MECLIZINE [Concomitant]
     Route: 065
  7. CYCLOBENZAPRINE HYDROCHLORIDE [Concomitant]
     Route: 065
  8. WELLBUTRIN [Concomitant]
     Route: 065
  9. PROPOXYPHENE HYDROCHLORIDE [Concomitant]
     Route: 065
     Dates: start: 19990401, end: 20001201

REACTIONS (7)
  - ADVERSE EVENT [None]
  - BLOOD CHOLESTEROL INCREASED [None]
  - HYPERTENSION [None]
  - MYOCARDIAL INFARCTION [None]
  - MYOCARDIAL ISCHAEMIA [None]
  - OEDEMA PERIPHERAL [None]
  - THROMBOSIS [None]
